FAERS Safety Report 18000420 (Version 1)
Quarter: 2020Q3

REPORT INFORMATION
  Report Type: Spontaneous
  Country: FR (occurrence: FR)
  Receive Date: 20200709
  Receipt Date: 20200709
  Transmission Date: 20201103
  Serious: Yes (Hospitalization)
  Sender: FDA-Public Use
  Company Number: FR-PFIZER INC-2020260295

PATIENT
  Age: 65 Year
  Sex: Male
  Weight: 83 kg

DRUGS (8)
  1. KARDEGIC [Concomitant]
     Active Substance: ASPIRIN DL-LYSINE
     Dosage: UNK
  2. BISOPROLOL HEMIFUMARATE [Concomitant]
     Active Substance: BISOPROLOL FUMARATE
     Dosage: UNK
  3. INNOHEP [Concomitant]
     Active Substance: TINZAPARIN SODIUM
     Dosage: UNK
  4. ESOMEPRAZOLE. [Concomitant]
     Active Substance: ESOMEPRAZOLE MAGNESIUM
     Dosage: UNK
  5. AMIODARONE HCL [Concomitant]
     Active Substance: AMIODARONE HYDROCHLORIDE
     Dosage: UNK
  6. HYDROCORTISONE. [Suspect]
     Active Substance: HYDROCORTISONE
     Dosage: UNK
  7. OPDIVO [Suspect]
     Active Substance: NIVOLUMAB
     Indication: LUNG NEOPLASM MALIGNANT
     Dosage: 240 MG, CYCLIC
     Route: 041
     Dates: start: 20171018, end: 20180131
  8. MIANSERINE [MIANSERIN HYDROCHLORIDE] [Concomitant]
     Active Substance: MIANSERIN HYDROCHLORIDE
     Dosage: UNK

REACTIONS (2)
  - Cardiomyopathy [Not Recovered/Not Resolved]
  - Hyperthyroidism [Unknown]

NARRATIVE: CASE EVENT DATE: 20180131
